FAERS Safety Report 12538122 (Version 4)
Quarter: 2016Q4

REPORT INFORMATION
  Report Type: Report from Study
  Country: BR (occurrence: BR)
  Receive Date: 20160707
  Receipt Date: 20161118
  Transmission Date: 20170207
  Serious: Yes (Hospitalization, Other)
  Sender: FDA-Public Use
  Company Number: PHHY2016BR012388

PATIENT
  Age: 49 Year
  Sex: Female
  Weight: 43 kg

DRUGS (7)
  1. EXJADE [Suspect]
     Active Substance: DEFERASIROX
     Dosage: 10 MG/KG, (500 MG) QD
     Route: 048
  2. EXJADE [Suspect]
     Active Substance: DEFERASIROX
     Dosage: 10 MG/KG, (500 MG), QHS (AT NIGHT)
     Route: 048
     Dates: start: 201512
  3. VITAMIN A [Concomitant]
     Active Substance: VITAMIN A
     Indication: PRODUCT USED FOR UNKNOWN INDICATION
     Dosage: UNK
     Route: 065
  4. EXJADE [Suspect]
     Active Substance: DEFERASIROX
     Dosage: 10 MG/KG, (500 MG) QD
     Route: 048
  5. FOLIC ACID. [Concomitant]
     Active Substance: FOLIC ACID
     Indication: SICKLE CELL ANAEMIA
     Dosage: 0.5 MG, QD
     Route: 048
  6. EXJADE [Suspect]
     Active Substance: DEFERASIROX
     Indication: SICKLE CELL ANAEMIA
     Dosage: 10 MG/KG (500 MG) QD
     Route: 048
     Dates: start: 20151015
  7. EXJADE [Suspect]
     Active Substance: DEFERASIROX
     Dosage: 10 MG/KG, (500 MG) QD
     Route: 048

REACTIONS (27)
  - Sickle cell anaemia with crisis [Recovered/Resolved]
  - Somnolence [Recovering/Resolving]
  - Blood iron increased [Not Recovered/Not Resolved]
  - Fatigue [Recovering/Resolving]
  - Weight increased [Unknown]
  - Weight decreased [Unknown]
  - Pain [Recovered/Resolved]
  - Headache [Recovering/Resolving]
  - Chills [Unknown]
  - Decreased immune responsiveness [Recovering/Resolving]
  - Malaise [Unknown]
  - Nervousness [Unknown]
  - Dyspepsia [Not Recovered/Not Resolved]
  - Nausea [Recovering/Resolving]
  - Abdominal pain [Recovering/Resolving]
  - Pyrexia [Unknown]
  - Feeling hot [Unknown]
  - Pain in extremity [Recovered/Resolved]
  - Gastritis [Not Recovered/Not Resolved]
  - Gait disturbance [Recovering/Resolving]
  - Chest discomfort [Unknown]
  - Decreased appetite [Recovering/Resolving]
  - Back pain [Recovered/Resolved]
  - Body temperature increased [Recovering/Resolving]
  - Anger [Unknown]
  - Palpitations [Unknown]
  - Peripheral swelling [Recovered/Resolved]

NARRATIVE: CASE EVENT DATE: 20160623
